FAERS Safety Report 10555891 (Version 3)
Quarter: 2015Q2

REPORT INFORMATION
  Report Type: Spontaneous
  Country: US (occurrence: US)
  Receive Date: 20141030
  Receipt Date: 20150429
  Transmission Date: 20150821
  Serious: No
  Sender: FDA-Public Use
  Company Number: US-PFIZER INC-2014299527

PATIENT
  Sex: Female

DRUGS (3)
  1. ADVIL [Concomitant]
     Active Substance: IBUPROFEN
     Dosage: UNK
  2. ALEVE [Concomitant]
     Active Substance: NAPROXEN SODIUM
     Dosage: UNK
  3. LYRICA [Suspect]
     Active Substance: PREGABALIN
     Indication: PAIN
     Dosage: UNK

REACTIONS (8)
  - Fatigue [Unknown]
  - Hypoaesthesia [Unknown]
  - Burning sensation [Unknown]
  - Vision blurred [Unknown]
  - Drug ineffective [Unknown]
  - Feeling abnormal [Unknown]
  - Back pain [Unknown]
  - Tremor [Unknown]
